FAERS Safety Report 7267460-2 (Version None)
Quarter: 2011Q1

REPORT INFORMATION
  Report Type: 
  Country: None (occurrence: None)
  Receive Date: 20110121
  Receipt Date: 20110112
  Transmission Date: 20110831
  Serious: Yes (Hospitalization)
  Sender: FDA-Public Use
  Company Number: 025398

PATIENT
  Sex: Female

DRUGS (1)
  1. CIMZIA [Suspect]
     Indication: CROHN'S DISEASE
     Dosage: SUBCUTANEOUS
     Route: 058
     Dates: start: 20090509

REACTIONS (13)
  - PAIN [None]
  - OEDEMA [None]
  - OEDEMA PERIPHERAL [None]
  - PAIN IN EXTREMITY [None]
  - DIARRHOEA [None]
  - KIDNEY INFECTION [None]
  - CROHN'S DISEASE [None]
  - PYREXIA [None]
  - FURUNCLE [None]
  - CONDITION AGGRAVATED [None]
  - JOINT EFFUSION [None]
  - SKIN DISCOLOURATION [None]
  - STOMATITIS [None]
